FAERS Safety Report 9435307 (Version 1)
Quarter: 2013Q3

REPORT INFORMATION
  Report Type: Spontaneous
  Country: US (occurrence: US)
  Receive Date: 20130801
  Receipt Date: 20130801
  Transmission Date: 20140515
  Serious: Yes (Hospitalization)
  Sender: FDA-Public Use
  Company Number: US-CELGENEUS-163-20785-13073441

PATIENT
  Sex: Male

DRUGS (3)
  1. THALOMID [Suspect]
     Indication: PLASMA CELL MYELOMA
     Dosage: 100 MILLIGRAM
     Route: 048
     Dates: start: 201301
  2. THALOMID [Suspect]
     Dosage: 100 MILLIGRAM
     Route: 048
     Dates: start: 20130502
  3. THALOMID [Suspect]
     Dosage: 100 MILLIGRAM
     Route: 048
     Dates: start: 201306

REACTIONS (2)
  - Aphasia [Unknown]
  - Malaise [Unknown]
